FAERS Safety Report 12483250 (Version 1)
Quarter: 2016Q2

REPORT INFORMATION
  Report Type: Other
  Country: US (occurrence: US)
  Receive Date: 20160621
  Receipt Date: 20160621
  Transmission Date: 20160815
  Serious: Yes (Life-Threatening, Other)
  Sender: FDA-Public Use
  Company Number: US-JUBILANT GENERICS LIMITED-1054105

PATIENT
  Age: 33 Year
  Sex: Female

DRUGS (4)
  1. SERTRALINE [Suspect]
     Active Substance: SERTRALINE HYDROCHLORIDE
  2. VENLAFAXINE [Suspect]
     Active Substance: VENLAFAXINE HYDROCHLORIDE
  3. TEMEZEPAM [Suspect]
     Active Substance: TEMAZEPAM
  4. QUETIAPINE FUMARATE. [Suspect]
     Active Substance: QUETIAPINE FUMARATE

REACTIONS (15)
  - Drug interaction [Unknown]
  - Withdrawal syndrome [Unknown]
  - Fatigue [None]
  - Amnesia [None]
  - Confusional state [None]
  - Homicide [Unknown]
  - Suicide attempt [Unknown]
  - Thinking abnormal [None]
  - Mood swings [None]
  - Depression [None]
  - Akathisia [Unknown]
  - Panic attack [None]
  - Delusion [None]
  - Abnormal behaviour [None]
  - Aggression [None]

NARRATIVE: CASE EVENT DATE: 20160608
